FAERS Safety Report 19614540 (Version 1)
Quarter: 2021Q3

REPORT INFORMATION
  Report Type: Spontaneous
  Country: CN (occurrence: CN)
  Receive Date: 20210727
  Receipt Date: 20210727
  Transmission Date: 20211014
  Serious: Yes (Other)
  Sender: FDA-Public Use
  Company Number: CN-009507513-2107CHN007182

PATIENT
  Age: 43 Year
  Sex: Male

DRUGS (4)
  1. GEFITINIB. [Suspect]
     Active Substance: GEFITINIB
     Indication: LUNG ADENOCARCINOMA
     Dosage: UNK
     Dates: start: 201410, end: 201607
  2. PEMBROLIZUMAB. [Suspect]
     Active Substance: PEMBROLIZUMAB
     Indication: LUNG ADENOCARCINOMA
     Dosage: 8 CYCLES
     Dates: start: 2016
  3. GEFITINIB. [Suspect]
     Active Substance: GEFITINIB
     Dosage: UNK
     Dates: start: 201705, end: 201806
  4. GEFITINIB. [Suspect]
     Active Substance: GEFITINIB
     Dosage: UNK
     Dates: start: 201907

REACTIONS (3)
  - Malignant transformation [Unknown]
  - Product use in unapproved indication [Unknown]
  - Drug resistance [Unknown]

NARRATIVE: CASE EVENT DATE: 2016
